FAERS Safety Report 12885344 (Version 1)
Quarter: 2016Q4

REPORT INFORMATION
  Report Type: Spontaneous
  Country: US (occurrence: US)
  Receive Date: 20161025
  Receipt Date: 20161025
  Transmission Date: 20170207
  Serious: Yes (Disabling)
  Sender: FDA-Public Use
  Company Number: None

PATIENT
  Age: 40 Year
  Sex: Female
  Weight: 67.5 kg

DRUGS (3)
  1. COTTONWOOD BUD [Concomitant]
  2. IBUPROFEN. [Concomitant]
     Active Substance: IBUPROFEN
  3. LEVOFLOXACIN. [Suspect]
     Active Substance: LEVOFLOXACIN
     Indication: PNEUMONIA
     Dosage: QUANTITY:1 TABLET(S); DAILY; ORAL?
     Route: 048
     Dates: start: 20151104, end: 20151111

REACTIONS (4)
  - Arthralgia [None]
  - Pain [None]
  - Quality of life decreased [None]
  - Decreased activity [None]

NARRATIVE: CASE EVENT DATE: 20151104
